FAERS Safety Report 9803607 (Version 4)
Quarter: 2014Q2

REPORT INFORMATION
  Report Type: Report from Study
  Country: NL (occurrence: NL)
  Receive Date: 20140108
  Receipt Date: 20140619
  Transmission Date: 20141212
  Serious: Yes (Death, Hospitalization)
  Sender: FDA-Public Use
  Company Number: NL-ABBVIE-14P-114-1187447-00

PATIENT
  Sex: Male
  Weight: 65 kg

DRUGS (12)
  1. LUCRIN [Suspect]
     Indication: PROSTATE CANCER
     Route: 058
     Dates: start: 20130423
  2. BICALUTAMIDE [Concomitant]
     Indication: PROSTATE CANCER
     Route: 048
  3. CALCIUM CARBONATE W/COLECALCIFEROL [Concomitant]
     Indication: OSTEOPOROSIS PROPHYLAXIS
     Route: 048
  4. CLOPIDOGREL [Concomitant]
     Indication: THROMBOSIS PROPHYLAXIS
     Dosage: HCL
     Route: 048
  5. THYRAX [Concomitant]
     Indication: THYROID DISORDER
     Route: 048
     Dates: start: 2011
  6. STRUMAZOL [Concomitant]
     Indication: THYROID DISORDER
     Route: 048
     Dates: start: 2011
  7. PANTOPRAZOL [Concomitant]
     Indication: GASTRIC DISORDER
     Dosage: EC
     Route: 048
  8. PANTOPRAZOL [Concomitant]
     Indication: PROPHYLAXIS
  9. SIMVASTATIN [Concomitant]
     Indication: HYPERCHOLESTEROLAEMIA
     Dosage: PCH FC
     Route: 048
  10. SOTALOL [Concomitant]
     Indication: HYPERTENSION
     Route: 048
     Dates: start: 201312
  11. PREDNISOLON [Concomitant]
     Indication: CHEMOTHERAPY
     Route: 048
  12. ACENOCOUMAROL [Concomitant]
     Indication: ANTICOAGULANT THERAPY
     Route: 048

REACTIONS (7)
  - Death [Fatal]
  - Dehydration [Recovering/Resolving]
  - Pyelonephritis [Recovering/Resolving]
  - Candida sepsis [Recovering/Resolving]
  - Weight decreased [Recovering/Resolving]
  - Feeling cold [Unknown]
  - Blood pressure decreased [Unknown]
